FAERS Safety Report 6443385-7 (Version None)
Quarter: 2009Q4

REPORT INFORMATION
  Report Type: 
  Country: None (occurrence: None)
  Receive Date: 20091117
  Receipt Date: 20091106
  Transmission Date: 20100525
  Serious: Yes (Hospitalization)
  Sender: FDA-Public Use
  Company Number: FR-BRISTOL-MYERS SQUIBB COMPANY-14857007

PATIENT
  Age: 77 Year
  Sex: Female

DRUGS (2)
  1. GLUCOPHAGE [Suspect]
     Indication: DIABETES MELLITUS
     Route: 048
     Dates: start: 20090916, end: 20090917
  2. TAHOR [Suspect]
     Indication: DYSLIPIDAEMIA
     Dosage: TABS
     Route: 048
     Dates: start: 20090915, end: 20090917

REACTIONS (2)
  - PRURITUS [None]
  - RASH MACULO-PAPULAR [None]
